FAERS Safety Report 12502701 (Version 1)
Quarter: 2016Q2

REPORT INFORMATION
  Report Type: Spontaneous
  Country: GB (occurrence: GB)
  Receive Date: 20160628
  Receipt Date: 20160628
  Transmission Date: 20160815
  Serious: Yes (Hospitalization)
  Sender: FDA-Public Use
  Company Number: GB-STRIDES ARCOLAB LIMITED-2016SP008477

PATIENT

DRUGS (2)
  1. ERYTHROMYCIN. [Concomitant]
     Active Substance: ERYTHROMYCIN
     Indication: INFECTION PROPHYLAXIS
     Dosage: UNK
  2. IMIQUIMOD. [Suspect]
     Active Substance: IMIQUIMOD
     Indication: BASAL CELL CARCINOMA
     Dosage: UNK

REACTIONS (6)
  - Skin necrosis [Recovered/Resolved]
  - Stevens-Johnson syndrome [Recovered/Resolved]
  - Skin lesion [Recovered/Resolved]
  - Toxic epidermal necrolysis [Recovered/Resolved]
  - Skin erosion [Recovered/Resolved]
  - Nikolsky^s sign [Recovered/Resolved]
